FAERS Safety Report 11274418 (Version 4)
Quarter: 2015Q3

REPORT INFORMATION
  Report Type: Spontaneous
  Country: GB (occurrence: GB)
  Receive Date: 20150715
  Receipt Date: 20150825
  Transmission Date: 20151125
  Serious: Yes (Other)
  Sender: FDA-Public Use
  Company Number: GB-PFIZER INC-2015228732

PATIENT
  Age: 70 Year
  Sex: Female
  Weight: 84 kg

DRUGS (1)
  1. EXEMESTANE. [Suspect]
     Active Substance: EXEMESTANE
     Dosage: 25 MG, 1X/DAY
     Route: 048
     Dates: start: 20121020

REACTIONS (12)
  - Arthralgia [Unknown]
  - Muscle spasms [Unknown]
  - Depression [Unknown]
  - Hyperhidrosis [Unknown]
  - Female orgasmic disorder [Not Recovered/Not Resolved]
  - Vaginal disorder [Not Recovered/Not Resolved]
  - Myalgia [Unknown]
  - Insomnia [Unknown]
  - Headache [Unknown]
  - Decreased appetite [Unknown]
  - Carpal tunnel syndrome [Unknown]
  - Vulvovaginal discomfort [Not Recovered/Not Resolved]

NARRATIVE: CASE EVENT DATE: 201210
